FAERS Safety Report 10379269 (Version 2)
Quarter: 2014Q3

REPORT INFORMATION
  Report Type: Spontaneous
  Country: US (occurrence: US)
  Receive Date: 20140812
  Receipt Date: 20140812
  Transmission Date: 20150326
  Serious: Yes (Other)
  Sender: FDA-Public Use
  Company Number: US-BRISTOL-MYERS SQUIBB COMPANY-20222030

PATIENT
  Age: 22 Year
  Sex: Female

DRUGS (6)
  1. MEPRON [Concomitant]
     Active Substance: ATOVAQUONE
  2. NORVIR [Concomitant]
     Active Substance: RITONAVIR
  3. REYATAZ [Suspect]
     Active Substance: ATAZANAVIR SULFATE
     Dates: start: 20131118
  4. TRAVATAN [Concomitant]
     Active Substance: TRAVOPROST
  5. DIFLUCAN [Concomitant]
     Active Substance: FLUCONAZOLE
  6. AZITHROMYCIN [Concomitant]
     Active Substance: AZITHROMYCIN ANHYDROUS

REACTIONS (2)
  - Treatment noncompliance [Unknown]
  - Drug resistance [Unknown]
